FAERS Safety Report 4652835-8 (Version None)
Quarter: 2005Q2

REPORT INFORMATION
  Report Type: 
  Country: None (occurrence: None)
  Receive Date: 20050502
  Receipt Date: 20050421
  Transmission Date: 20051028
  Serious: Yes (Other)
  Sender: FDA-Public Use
  Company Number: HQWYE258525APR05

PATIENT
  Sex: Male

DRUGS (2)
  1. MINOCYCLINE HCL [Suspect]
     Dosage: ORAL
     Route: 048
     Dates: start: 20050407, end: 20050420
  2. EBASTEL (EBASTINE) [Concomitant]

REACTIONS (4)
  - CONDITION AGGRAVATED [None]
  - DEAFNESS [None]
  - DIZZINESS [None]
  - HEADACHE [None]
